FAERS Safety Report 8992338 (Version 1)
Quarter: 2012Q4

REPORT INFORMATION
  Report Type: Report from Study
  Country: CA (occurrence: CA)
  Receive Date: 20121231
  Receipt Date: 20121231
  Transmission Date: 20130627
  Serious: Yes (Hospitalization)
  Sender: FDA-Public Use
  Company Number: CA-JNJFOC-20121210174

PATIENT
  Age: 28 None
  Sex: Male
  Weight: 53.98 kg

DRUGS (6)
  1. REMICADE [Suspect]
     Indication: COLITIS ULCERATIVE
     Route: 042
     Dates: start: 2012
  2. BUSCOPAN [Concomitant]
     Route: 065
  3. PREDNISONE [Concomitant]
     Route: 065
  4. OXYCOCET [Concomitant]
     Route: 065
  5. MYLAN-ZOPICLONE [Concomitant]
     Route: 065
  6. ALL OTHER THERAPEUTIC AGENTS [Concomitant]
     Route: 065

REACTIONS (9)
  - Colitis ulcerative [Unknown]
  - Weight increased [Unknown]
  - Malaise [Unknown]
  - Insomnia [Unknown]
  - Hallucination [Unknown]
  - Temperature intolerance [Unknown]
  - Bone disorder [Unknown]
  - Abasia [Unknown]
  - Gait disturbance [Unknown]
